FAERS Safety Report 8940823 (Version 2)
Quarter: 2013Q1

REPORT INFORMATION
  Report Type: Spontaneous
  Country: DK (occurrence: DK)
  Receive Date: 20121203
  Receipt Date: 20130129
  Transmission Date: 20140127
  Serious: Yes (Other)
  Sender: FDA-Public Use
  Company Number: DK-ROCHE-1162063

PATIENT
  Age: 57 Year
  Sex: Female

DRUGS (8)
  1. HERCEPTIN [Suspect]
     Indication: BREAST CANCER
     Route: 042
     Dates: start: 200804
  2. HERCEPTIN [Suspect]
     Route: 042
     Dates: start: 20100913, end: 20100913
  3. XELODA [Suspect]
     Indication: BREAST CANCER
     Dosage: DAY 1- 14 EVERY THREE WEEKS
     Route: 048
     Dates: start: 20100913, end: 20100927
  4. TAXOTERE [Suspect]
     Indication: BREAST CANCER
     Route: 065
     Dates: start: 200804
  5. LAPATINIB [Suspect]
     Indication: BREAST CANCER
     Route: 065
  6. PACLITAXEL [Suspect]
     Indication: BREAST CANCER
     Route: 065
  7. ERIBULIN [Suspect]
     Indication: BREAST CANCER
     Route: 065
  8. VINORELBINE [Suspect]
     Indication: BREAST CANCER
     Route: 065

REACTIONS (1)
  - Disease progression [Recovered/Resolved]
